FAERS Safety Report 4422265-2 (Version None)
Quarter: 2004Q3

REPORT INFORMATION
  Report Type: 
  Country: None (occurrence: None)
  Receive Date: 20040806
  Receipt Date: 20040719
  Transmission Date: 20050211
  Serious: No
  Sender: FDA-Public Use
  Company Number: USA040773025

PATIENT
  Age: 16 Year
  Sex: Male

DRUGS (3)
  1. ZYPREXA [Suspect]
     Dosage: 15 MG DAY
     Dates: start: 20030101
  2. SINGULAIR (MONTELUKAST)) [Concomitant]
  3. TRILEPTAL [Concomitant]

REACTIONS (2)
  - EPISTAXIS [None]
  - WEIGHT INCREASED [None]
